FAERS Safety Report 7417286-1 (Version None)
Quarter: 2011Q2

REPORT INFORMATION
  Report Type: 
  Country: None (occurrence: None)
  Receive Date: 20110415
  Receipt Date: 20110412
  Transmission Date: 20111010
  Serious: Yes (Hospitalization, Other)
  Sender: FDA-Public Use
  Company Number: ZA-BRISTOL-MYERS SQUIBB COMPANY-15413339

PATIENT
  Age: 7 Year
  Sex: Female

DRUGS (10)
  1. CAPREOMYCIN [Concomitant]
  2. EFAVIRENZ [Suspect]
     Indication: HIV INFECTION
     Route: 048
  3. AMINOSALICYLIC ACID [Concomitant]
  4. ETHAMBUTOL HYDROCHLORIDE [Concomitant]
  5. PYRAZINAMIDE [Concomitant]
  6. ETHIONAMIDE [Concomitant]
  7. CLARITHROMYCIN [Concomitant]
  8. CYCLOSERINE [Interacting]
     Indication: TUBERCULOSIS
     Route: 048
  9. LAMIVUDINE [Concomitant]
  10. AMOXICILLIN AND CLAVULANATE POTASSIUM [Concomitant]

REACTIONS (2)
  - DRUG INTERACTION [None]
  - ACUTE PSYCHOSIS [None]
